FAERS Safety Report 6216461-1 (Version None)
Quarter: 2009Q2

REPORT INFORMATION
  Report Type: 
  Country: None (occurrence: None)
  Receive Date: 20090605
  Receipt Date: 20090603
  Transmission Date: 20091009
  Serious: Yes (Death)
  Sender: FDA-Public Use
  Company Number: JP-AVENTIS-200910118JP

PATIENT
  Age: 72 Year
  Sex: Male
  Weight: 59.1 kg

DRUGS (6)
  1. TAXOTERE [Suspect]
     Route: 042
     Dates: start: 20081007, end: 20081218
  2. TAXOTERE [Suspect]
     Route: 041
     Dates: start: 20081007, end: 20081218
  3. UFT [Suspect]
     Dates: start: 20080530, end: 20090106
  4. ENDOXAN [Suspect]
     Dates: start: 20080530, end: 20080728
  5. PREDNISOLONE [Concomitant]
     Route: 048
     Dates: start: 20081007, end: 20081218
  6. ESTRACYT                           /00327002/ [Concomitant]
     Dates: start: 20070726, end: 20080929

REACTIONS (1)
  - INTERSTITIAL LUNG DISEASE [None]
